FAERS Safety Report 21477779 (Version 1)
Quarter: 2022Q4

REPORT INFORMATION
  Report Type: Spontaneous
  Country: GB (occurrence: GB)
  Receive Date: 20221019
  Receipt Date: 20221019
  Transmission Date: 20230113
  Serious: Yes (Other)
  Sender: FDA-Public Use
  Company Number: GB-MHRA-MED-202210101447103070-YRKHG

PATIENT
  Sex: Female

DRUGS (1)
  1. STELARA [Suspect]
     Active Substance: USTEKINUMAB
     Indication: Psoriasis
     Dosage: 90 MG? DOSAGE FORM- 120 MG
     Route: 058

REACTIONS (2)
  - Deafness [Not Recovered/Not Resolved]
  - Ear swelling [Not Recovered/Not Resolved]
